FAERS Safety Report 7710733-7 (Version None)
Quarter: 2011Q3

REPORT INFORMATION
  Report Type: 
  Country: None (occurrence: None)
  Receive Date: 20110825
  Receipt Date: 20110824
  Transmission Date: 20111222
  Serious: Yes (Other)
  Sender: FDA-Public Use
  Company Number: US-ROXANE LABORATORIES, INC.-2011-RO-01062RO

PATIENT
  Age: 49 Year
  Sex: Male

DRUGS (20)
  1. PREDNISONE [Suspect]
     Indication: UVEITIS
     Dosage: 10 MG
     Route: 048
     Dates: start: 20101110, end: 20101123
  2. PREDNISONE [Suspect]
     Dosage: 7.5 MG
     Route: 048
     Dates: start: 20101124, end: 20101207
  3. PREDNISONE [Suspect]
     Dosage: 2 MG
     Route: 048
     Dates: start: 20110112, end: 20110125
  4. PREDNISONE [Suspect]
     Dosage: 1 MG
     Route: 048
     Dates: start: 20110126, end: 20110208
  5. ATORVASTATIN CALCIUM [Concomitant]
     Indication: BLOOD CHOLESTEROL INCREASED
  6. METHYLPREDNISOLONE SODIUM SUCCINATE [Concomitant]
     Route: 042
     Dates: start: 20100503
  7. PREDNISONE [Suspect]
     Dosage: 3 MG
     Route: 048
     Dates: start: 20101229, end: 20110111
  8. FOLIC ACID [Concomitant]
     Indication: PROPHYLAXIS
  9. CLONAZEPAM [Concomitant]
     Indication: ANXIETY
     Dates: start: 20080901
  10. CYCLOSPORINE [Concomitant]
     Indication: UVEITIS
     Dosage: 300 MG
     Route: 048
     Dates: start: 20090801, end: 20101012
  11. CYCLOSPORINE [Concomitant]
     Dosage: 300 MG
     Route: 048
     Dates: start: 20100527
  12. BUPROPION HYDROCHLORIDE [Concomitant]
     Indication: DEPRESSED MOOD
  13. PREDNISONE [Suspect]
     Dosage: 5 MG
     Route: 048
     Dates: start: 20101208, end: 20101214
  14. PREDNISONE [Suspect]
     Dosage: 4 MG
     Route: 048
     Dates: start: 20101215, end: 20101228
  15. LISINOPRIL [Concomitant]
     Indication: HYPERTENSION
     Dates: start: 20100801
  16. HUMIRA [Suspect]
     Indication: UVEITIS
     Route: 058
     Dates: start: 20101109
  17. BUPROPION HYDROCHLORIDE [Concomitant]
     Indication: MOOD SWINGS
     Dates: start: 20110119
  18. DUREZOL [Concomitant]
     Route: 061
     Dates: start: 20100430
  19. BUPROPION HYDROCHLORIDE [Concomitant]
     Indication: DEPRESSION
  20. SEROQUEL XR [Concomitant]
     Indication: INSOMNIA
     Dates: start: 20100801

REACTIONS (1)
  - CONVULSION [None]
